FAERS Safety Report 7784771-2 (Version None)
Quarter: 2011Q3

REPORT INFORMATION
  Report Type: 
  Country: None (occurrence: None)
  Receive Date: 20110928
  Receipt Date: 20110923
  Transmission Date: 20111222
  Serious: Yes (Hospitalization)
  Sender: FDA-Public Use
  Company Number: GB-PFIZER INC-2011227942

PATIENT
  Age: 41 Year
  Sex: Female

DRUGS (4)
  1. SOLVAZINC [Concomitant]
  2. NICOTINE [Concomitant]
  3. THIAMINE [Concomitant]
  4. SPIRONOLACTONE [Suspect]
     Dosage: UNK
     Route: 048
     Dates: start: 20110902, end: 20110912

REACTIONS (1)
  - PANCYTOPENIA [None]
